FAERS Safety Report 18606504 (Version 2)
Quarter: 2020Q4

REPORT INFORMATION
  Report Type: Report from Study
  Country: US (occurrence: US)
  Receive Date: 20201211
  Receipt Date: 20201215
  Transmission Date: 20210114
  Serious: Yes (Other)
  Sender: FDA-Public Use
  Company Number: NVSC2020US326568

PATIENT
  Age: 49 Year
  Sex: Female

DRUGS (2)
  1. AFINITOR [Suspect]
     Active Substance: EVEROLIMUS
     Indication: ANGIOMYOLIPOMA
  2. AFINITOR [Suspect]
     Active Substance: EVEROLIMUS
     Indication: TUBEROUS SCLEROSIS COMPLEX
     Dosage: 10 MG, QD
     Route: 048
     Dates: start: 20150320

REACTIONS (1)
  - Pneumonia [Unknown]

NARRATIVE: CASE EVENT DATE: 20201208
